FAERS Safety Report 7617281-3 (Version None)
Quarter: 2011Q3

REPORT INFORMATION
  Report Type: 
  Country: None (occurrence: None)
  Receive Date: 20110718
  Receipt Date: 20110706
  Transmission Date: 20111222
  Serious: Yes (Hospitalization)
  Sender: FDA-Public Use
  Company Number: US-ELI_LILLY_AND_COMPANY-US201107002775

PATIENT
  Sex: Female

DRUGS (6)
  1. ASCORBIC ACID [Concomitant]
  2. CHOLESTEROL [Concomitant]
  3. CALCIUM CARBONATE [Concomitant]
  4. VITAMIN D [Concomitant]
  5. FORTEO [Suspect]
     Indication: OSTEOPOROSIS
     Dosage: 20 UG, QD
     Dates: start: 20110617, end: 20110628
  6. ASPIRIN [Concomitant]

REACTIONS (3)
  - ANAEMIA [None]
  - STAPHYLOCOCCAL INFECTION [None]
  - PNEUMONIA [None]
